FAERS Safety Report 19913056 (Version 1)
Quarter: 2021Q4

REPORT INFORMATION
  Report Type: Spontaneous
  Country: GB (occurrence: GB)
  Receive Date: 20211004
  Receipt Date: 20211004
  Transmission Date: 20220304
  Serious: Yes (Other)
  Sender: FDA-Public Use
  Company Number: None

PATIENT
  Age: 68 Year
  Sex: Female
  Weight: 69.09 kg

DRUGS (8)
  1. IBANDRONATE SODIUM [Suspect]
     Active Substance: IBANDRONATE SODIUM
     Indication: Localised infection
     Dosage: UNK
     Route: 048
  2. COCODAMOL [Concomitant]
     Active Substance: ACETAMINOPHEN\CODEINE PHOSPHATE
     Dosage: UNK UNK, QID (1-2 TABLETS UP TO FOUR TIMES DAILY WHEN REQUIRED)
     Dates: start: 20210709
  3. COCODAMOL [Concomitant]
     Active Substance: ACETAMINOPHEN\CODEINE PHOSPHATE
     Dosage: UNK UNK, QID (1-2 TABLETS UP TO FOUR TIMES DAILY WHEN REQUIRED)
     Dates: start: 20210901
  4. COCODAMOL [Concomitant]
     Active Substance: ACETAMINOPHEN\CODEINE PHOSPHATE
     Dosage: UNK UNK, QID (1-2 TABLETS UP TO FOUR TIMES DAILY WHEN REQUIRED)
     Dates: start: 20210927
  5. FERROUS FUMARATE [Concomitant]
     Active Substance: FERROUS FUMARATE
     Dosage: 1 DOSAGE FORM, BID (TAKE 1 TABLET TWICE DAILY)
     Dates: start: 20210706
  6. FLUCLOXACILLIN [Concomitant]
     Active Substance: FLUCLOXACILLIN
     Dosage: 1 DOSAGE FORM, QID (1 CAPSULE FOUR TIMES A DAY)
     Dates: start: 20210907
  7. LANSOPRAZOLE [Concomitant]
     Active Substance: LANSOPRAZOLE
     Dosage: 1 DOSAGE FORM, QD 1 CAPSULE DAILY (TRY TO MANAGE ON LOWER DOSE LANSOPRAZOLE)
     Dates: start: 20210728
  8. LANSOPRAZOLE [Concomitant]
     Active Substance: LANSOPRAZOLE
     Dosage: 1 DOSAGE FORM, QD (1 CAPSULE DAILY)
     Dates: start: 20210706

REACTIONS (1)
  - Melaena [Recovered/Resolved]
